FAERS Safety Report 5341492-3 (Version None)
Quarter: 2007Q2

REPORT INFORMATION
  Report Type: 
  Country: None (occurrence: None)
  Receive Date: 20070601
  Receipt Date: 20070524
  Transmission Date: 20071010
  Serious: Yes (Other)
  Sender: FDA-Public Use
  Company Number: PHEH2007US07989

PATIENT

DRUGS (2)
  1. DIOVAN [Suspect]
     Dosage: 160MG, UNK
  2. PROTONIX [Suspect]
     Indication: ULCER
     Dosage: UNK, UNK

REACTIONS (3)
  - DRUG INTERACTION [None]
  - PHARYNGEAL OEDEMA [None]
  - ULCER [None]
